FAERS Safety Report 4517115-X (Version None)
Quarter: 2004Q4

REPORT INFORMATION
  Report Type: 
  Country: None (occurrence: None)
  Receive Date: 20041130
  Receipt Date: 20041112
  Transmission Date: 20050328
  Serious: Yes (Death, Hospitalization)
  Sender: FDA-Public Use
  Company Number: JP_041004858

PATIENT
  Age: 78 Year
  Sex: Female
  Weight: 40 kg

DRUGS (4)
  1. GEMZAR [Suspect]
     Indication: PANCREATIC CARCINOMA
     Dosage: 1200 MG OTHER
     Route: 050
     Dates: start: 20020604, end: 20041005
  2. AMLODIPINE BESYLATE [Concomitant]
  3. LENDORM [Concomitant]
  4. KYTRIL - FOR INFUSION (GRANISETRON HYDROCHLORIDE) [Concomitant]

REACTIONS (6)
  - CARDIOMEGALY [None]
  - CHOLECYSTITIS ACUTE [None]
  - NASOPHARYNGITIS [None]
  - PNEUMONITIS [None]
  - REFUSAL OF TREATMENT BY PATIENT [None]
  - RESPIRATORY FAILURE [None]
